FAERS Safety Report 23194465 (Version 1)
Quarter: 2023Q4

REPORT INFORMATION
  Report Type: Spontaneous
  Country: FR (occurrence: FR)
  Receive Date: 20231117
  Receipt Date: 20231117
  Transmission Date: 20240109
  Serious: Yes (Other)
  Sender: FDA-Public Use
  Company Number: FR-BRISTOL-MYERS SQUIBB COMPANY-2023-152556

PATIENT
  Age: 60 Year
  Weight: 121 kg

DRUGS (1)
  1. NULOJIX [Suspect]
     Active Substance: BELATACEPT
     Indication: Product used for unknown indication
     Dosage: DOSE: 726
     Dates: start: 202104, end: 20230816

REACTIONS (3)
  - Transplant dysfunction [Unknown]
  - Azotaemia [Unknown]
  - Drug ineffective [Unknown]
